FAERS Safety Report 8448124-6 (Version None)
Quarter: 2012Q2

REPORT INFORMATION
  Report Type: 
  Country: None (occurrence: None)
  Receive Date: 20120531
  Receipt Date: 20120522
  Transmission Date: 20120825
  Serious: Yes (Hospitalization)
  Sender: FDA-Public Use
  Company Number: WAES 1203USA02722

PATIENT
  Age: 24 Year
  Sex: Male

DRUGS (1)
  1. ANTIVENIN (LATRODECTUS MACTANS) [Suspect]
     Indication: ARTHROPOD BITE

REACTIONS (2)
  - INFUSION RELATED REACTION [None]
  - URTICARIA [None]
